FAERS Safety Report 18567999 (Version 1)
Quarter: 2020Q4

REPORT INFORMATION
  Report Type: Spontaneous
  Country: CA (occurrence: CA)
  Receive Date: 20201202
  Receipt Date: 20201202
  Transmission Date: 20210114
  Serious: Yes (Hospitalization, Other)
  Sender: FDA-Public Use
  Company Number: CA-GLAXOSMITHKLINE-CA2020GSK235044

PATIENT
  Sex: Male

DRUGS (2)
  1. AVANDIA [Suspect]
     Active Substance: ROSIGLITAZONE MALEATE
     Indication: DIABETES MELLITUS
     Dosage: UNK UNK, QD
     Route: 048
     Dates: start: 20040618, end: 20070604
  2. AVANDAMET [Suspect]
     Active Substance: METFORMIN HYDROCHLORIDE\ROSIGLITAZONE MALEATE
     Indication: DIABETES MELLITUS
     Dosage: 1000/2MG, BID
     Route: 048

REACTIONS (10)
  - Coronary artery stenosis [Unknown]
  - Coronary artery bypass [Unknown]
  - Angina pectoris [Unknown]
  - Myocardial infarction [Unknown]
  - Coronary artery disease [Unknown]
  - Tricuspid valve incompetence [Unknown]
  - Left ventricular dysfunction [Unknown]
  - Acute myocardial infarction [Unknown]
  - Acute cardiac event [Unknown]
  - Mitral valve incompetence [Unknown]
